FAERS Safety Report 9219708 (Version 2)
Quarter: 2013Q2

REPORT INFORMATION
  Report Type: Spontaneous
  Country: US (occurrence: None)
  Receive Date: 20130405
  Receipt Date: 20130422
  Transmission Date: 20140414
  Serious: Yes (Hospitalization, Other)
  Sender: FDA-Public Use
  Company Number: 2013US001391

PATIENT
  Age: 67 Year
  Sex: Male
  Weight: 79 kg

DRUGS (3)
  1. ICLUSIG [Suspect]
     Indication: CHRONIC MYELOID LEUKAEMIA
     Route: 048
     Dates: start: 20130201, end: 20130315
  2. AMLODIPINE (AMLODIPINE) [Concomitant]
  3. PREDNISONE (PREDNISONE) [Concomitant]

REACTIONS (18)
  - Mitral valve incompetence [None]
  - Renal failure acute [None]
  - Scan myocardial perfusion abnormal [None]
  - Pulmonary oedema [None]
  - Thrombocytopenia [None]
  - Cardiac failure [None]
  - Night sweats [None]
  - Pulmonary mass [None]
  - Pleural effusion [None]
  - Abasia [None]
  - Middle insomnia [None]
  - Mitral valve incompetence [None]
  - Condition aggravated [None]
  - Dyspnoea [None]
  - Weight decreased [None]
  - Fatigue [None]
  - Neoplasm [None]
  - Nephropathy toxic [None]
